FAERS Safety Report 10023870 (Version 1)
Quarter: 2014Q1

REPORT INFORMATION
  Report Type: Spontaneous
  Country: US (occurrence: None)
  Receive Date: 20140319
  Receipt Date: 20140319
  Transmission Date: 20141002
  Serious: No
  Sender: FDA-Public Use
  Company Number: None

PATIENT
  Age: 58 Year
  Sex: Female

DRUGS (11)
  1. SERTRALINE HCL [Suspect]
     Indication: DEPRESSION
     Dosage: 1 PILL
     Route: 048
     Dates: start: 201401, end: 20140307
  2. SERTRALINE HCL [Suspect]
     Indication: ANXIETY
     Dosage: 1 PILL
     Route: 048
     Dates: start: 201401, end: 20140307
  3. SERTRALINE HCL [Suspect]
     Dosage: 1 PILL
     Route: 048
     Dates: start: 201401, end: 20140307
  4. LANTUS [Concomitant]
  5. HUMALOG [Concomitant]
  6. CLONAZAPAM [Concomitant]
  7. VERAPAMIL [Concomitant]
  8. SERTRALINE HCL [Concomitant]
  9. BUPROPION HCI [Concomitant]
  10. BISOPROLOL FUMARTE [Concomitant]
  11. RANITIDINE [Concomitant]

REACTIONS (5)
  - Product odour abnormal [None]
  - Burning sensation [None]
  - Dyspepsia [None]
  - Drug ineffective [None]
  - Incorrect dose administered [None]
